FAERS Safety Report 12921103 (Version 1)
Quarter: 2016Q4

REPORT INFORMATION
  Report Type: Spontaneous
  Country: US (occurrence: US)
  Receive Date: 20161107
  Receipt Date: 20161107
  Transmission Date: 20170207
  Serious: Yes (Hospitalization)
  Sender: FDA-Public Use
  Company Number: US-UNITED THERAPEUTICS-UNT-2016-016991

PATIENT
  Age: 58 Year
  Sex: Male
  Weight: 127.89 kg

DRUGS (2)
  1. TYVASO [Suspect]
     Active Substance: TREPROSTINIL
     Indication: PULMONARY HYPERTENSION
     Dosage: 54-72 ?G, QID
     Dates: start: 20131115
  2. SILDENAFIL. [Concomitant]
     Active Substance: SILDENAFIL
     Indication: PRODUCT USED FOR UNKNOWN INDICATION

REACTIONS (3)
  - Product use issue [Unknown]
  - Haemorrhoids [Unknown]
  - Ammonia increased [Unknown]

NARRATIVE: CASE EVENT DATE: 20161003
